FAERS Safety Report 11020329 (Version 1)
Quarter: 2015Q2

REPORT INFORMATION
  Report Type: Spontaneous
  Country: US (occurrence: US)
  Receive Date: 20150413
  Receipt Date: 20150413
  Transmission Date: 20150821
  Serious: No
  Sender: FDA-Public Use
  Company Number: US-ASTRAZENECA-2015SE32510

PATIENT
  Sex: Female
  Weight: 72.6 kg

DRUGS (2)
  1. PULMICORT FLEXHALER [Suspect]
     Active Substance: BUDESONIDE
     Indication: ASTHMA
     Dosage: 2 PUFFS DAILY
     Route: 055
     Dates: start: 201409
  2. PULMICORT FLEXHALER [Suspect]
     Active Substance: BUDESONIDE
     Indication: BRONCHITIS
     Dosage: 2 PUFFS DAILY
     Route: 055
     Dates: start: 201409

REACTIONS (8)
  - Memory impairment [Unknown]
  - Intentional product misuse [Unknown]
  - Visual acuity reduced [Not Recovered/Not Resolved]
  - Fatigue [Unknown]
  - Somnolence [Unknown]
  - Senile dementia [Unknown]
  - Claustrophobia [Unknown]
  - Body height decreased [Unknown]
